FAERS Safety Report 12060137 (Version 15)
Quarter: 2016Q4

REPORT INFORMATION
  Report Type: Report from Study
  Country: CA (occurrence: CA)
  Receive Date: 20160210
  Receipt Date: 20161125
  Transmission Date: 20170206
  Serious: Yes (Hospitalization, Other)
  Sender: FDA-Public Use
  Company Number: CA-ROCHE-1692004

PATIENT
  Age: 54 Year
  Sex: Female
  Weight: 76 kg

DRUGS (7)
  1. SUBLINOX [Concomitant]
     Active Substance: ZOLPIDEM TARTRATE
  2. KADCYLA [Suspect]
     Active Substance: ADO-TRASTUZUMAB EMTANSINE
     Indication: HER-2 POSITIVE BREAST CANCER
     Route: 042
     Dates: start: 20151217, end: 20160810
  3. KADCYLA [Suspect]
     Active Substance: ADO-TRASTUZUMAB EMTANSINE
     Route: 042
  4. HERCEPTIN [Suspect]
     Active Substance: TRASTUZUMAB
     Indication: HER-2 POSITIVE BREAST CANCER
     Route: 042
     Dates: start: 20150609
  5. PERJETA [Suspect]
     Active Substance: PERTUZUMAB
     Indication: HER-2 POSITIVE BREAST CANCER
     Route: 042
     Dates: start: 20150609
  6. HEPARIN [Suspect]
     Active Substance: HEPARIN SODIUM
     Indication: PRODUCT USED FOR UNKNOWN INDICATION
     Route: 065
  7. KADCYLA [Suspect]
     Active Substance: ADO-TRASTUZUMAB EMTANSINE
     Route: 042
     Dates: start: 20160810

REACTIONS (16)
  - Fatigue [Unknown]
  - Platelet count decreased [Unknown]
  - Monocyte count increased [Unknown]
  - Pneumonia [Not Recovered/Not Resolved]
  - Red cell distribution width increased [Unknown]
  - Blood pressure diastolic abnormal [Unknown]
  - Memory impairment [Not Recovered/Not Resolved]
  - Weight decreased [Unknown]
  - Acne [Not Recovered/Not Resolved]
  - Nasopharyngitis [Recovered/Resolved]
  - Headache [Unknown]
  - Oxygen saturation decreased [Unknown]
  - Dysgeusia [Unknown]
  - Blood pressure increased [Unknown]
  - Hypotension [Unknown]
  - Heart rate increased [Unknown]

NARRATIVE: CASE EVENT DATE: 201512
